FAERS Safety Report 9907073 (Version 2)
Quarter: 2014Q2

REPORT INFORMATION
  Report Type: Spontaneous
  Country: US (occurrence: US)
  Receive Date: 20140218
  Receipt Date: 20140403
  Transmission Date: 20141212
  Serious: Yes (Other)
  Sender: FDA-Public Use
  Company Number: US-UCBSA-112312

PATIENT
  Sex: Female
  Weight: 113.8 kg

DRUGS (20)
  1. CIMZIA [Suspect]
     Indication: RHEUMATOID ARTHRITIS
     Route: 058
     Dates: start: 2008, end: 20140122
  2. PREDNISONE [Suspect]
  3. MAGNESIUM AND ZINC [Concomitant]
     Indication: SUPPLEMENTATION THERAPY
     Route: 048
  4. MAGNESIUM AND ZINC [Concomitant]
     Indication: SUPPLEMENTATION THERAPY
  5. CELEBREX [Concomitant]
     Indication: PAIN
     Route: 048
  6. POTASSIUM [Concomitant]
     Indication: MINERAL SUPPLEMENTATION
     Route: 048
  7. LASIX [Concomitant]
     Indication: SWELLING
     Route: 048
  8. CALCIUM WITH VITAMIN D [Concomitant]
     Indication: MINERAL SUPPLEMENTATION
     Route: 048
  9. VITAMIN D [Concomitant]
     Indication: VITAMIN SUPPLEMENTATION
     Dosage: 50000 UNITS
     Route: 048
  10. B-12 [Concomitant]
     Indication: VITAMIN SUPPLEMENTATION
     Route: 048
  11. PROTONIX [Concomitant]
     Indication: GASTROOESOPHAGEAL REFLUX DISEASE
     Route: 048
  12. ZENLASAXINE [Concomitant]
     Indication: DEPRESSION
     Route: 048
  13. CLOPIDOGREL [Concomitant]
     Indication: ANTICOAGULANT THERAPY
     Route: 048
  14. ADVAIR [Concomitant]
     Indication: CHRONIC OBSTRUCTIVE PULMONARY DISEASE
     Dosage: INHALER
  15. SPIRIVA [Concomitant]
     Indication: CHRONIC OBSTRUCTIVE PULMONARY DISEASE
     Dosage: INHALER
  16. OXYGEN [Concomitant]
     Dosage: 2L AT ALL TIMES
  17. LOSARTEN POT [Concomitant]
     Indication: BLOOD PRESSURE
     Route: 048
  18. EMURAN [Concomitant]
     Indication: RHEUMATOID ARTHRITIS
     Route: 048
     Dates: start: 201203
  19. LYRICA [Concomitant]
     Dosage: 75MG; ONE IN AM AND TWO IN PM
  20. PROVENTIL [Concomitant]
     Dosage: INHALER

REACTIONS (7)
  - Renal impairment [Not Recovered/Not Resolved]
  - Back pain [Not Recovered/Not Resolved]
  - Pain in extremity [Not Recovered/Not Resolved]
  - Arthralgia [Not Recovered/Not Resolved]
  - Musculoskeletal pain [Not Recovered/Not Resolved]
  - Pain [Not Recovered/Not Resolved]
  - Joint swelling [Not Recovered/Not Resolved]
